FAERS Safety Report 16210773 (Version 8)
Quarter: 2020Q3

REPORT INFORMATION
  Report Type: Other
  Country: DE (occurrence: DE)
  Receive Date: 20190418
  Receipt Date: 20200916
  Transmission Date: 20201102
  Serious: No
  Sender: FDA-Public Use
  Company Number: DE-ROCHE-2305240

PATIENT
  Age: 26 Year
  Sex: Female
  Weight: 55 kg

DRUGS (19)
  1. DEKRISTOL [Concomitant]
     Active Substance: CHOLECALCIFEROL
  2. RANITIDIN [Concomitant]
     Active Substance: RANITIDINE HYDROCHLORIDE
  3. ISOZID [Concomitant]
     Active Substance: ISONIAZID
  4. CIPROFLOXACIN. [Concomitant]
     Active Substance: CIPROFLOXACIN
  5. OCRELIZUMAB. [Suspect]
     Active Substance: OCRELIZUMAB
     Route: 042
     Dates: start: 20190116, end: 20200123
  6. METHYLPREDNISOLON [Concomitant]
     Active Substance: METHYLPREDNISOLONE
  7. UNACID [Concomitant]
  8. MICTONORM [Concomitant]
     Active Substance: PROPIVERINE HYDROCHLORIDE
  9. SATIVEX [Concomitant]
     Active Substance: NABIXIMOLS
  10. PREDNISOLUT [Concomitant]
     Active Substance: PREDNISOLONE
  11. OCRELIZUMAB. [Suspect]
     Active Substance: OCRELIZUMAB
     Indication: RELAPSING MULTIPLE SCLEROSIS
     Route: 042
     Dates: start: 20180702, end: 20180716
  12. SERTRALINE [Concomitant]
     Active Substance: SERTRALINE HYDROCHLORIDE
  13. PREDNISOLUT [Concomitant]
     Active Substance: PREDNISOLONE
  14. ACICLOVIR [Concomitant]
     Active Substance: ACYCLOVIR
  15. PROMETHAZINE [Concomitant]
     Active Substance: PROMETHAZINE HYDROCHLORIDE
  16. BACLOFEN. [Concomitant]
     Active Substance: BACLOFEN
  17. AERIUS [Concomitant]
  18. BOTOX [Concomitant]
     Active Substance: ONABOTULINUMTOXINA
     Indication: BLADDER DYSFUNCTION
     Route: 043
     Dates: start: 201905, end: 201905
  19. CANNABIS [Concomitant]
     Active Substance: CANNABIS SATIVA SUBSP. INDICA TOP

REACTIONS (2)
  - Herpes zoster [Recovered/Resolved]
  - Herpes zoster [Unknown]

NARRATIVE: CASE EVENT DATE: 201903
